FAERS Safety Report 6158839-0 (Version None)
Quarter: 2009Q2

REPORT INFORMATION
  Report Type: 
  Country: None (occurrence: None)
  Receive Date: 20090415
  Receipt Date: 20090331
  Transmission Date: 20091009
  Serious: Yes (Other)
  Sender: FDA-Public Use
  Company Number: JHP200900105

PATIENT
  Sex: Female

DRUGS (2)
  1. PITOCIN [Suspect]
     Indication: LABOUR INDUCTION
     Dosage: INTRAVENOUS
     Route: 042
  2. EPIDURAL ANESTHESIA [Concomitant]

REACTIONS (4)
  - CAESAREAN SECTION [None]
  - DRUG EXPOSURE DURING PREGNANCY [None]
  - UTERINE HYPERTONUS [None]
  - WRONG DRUG ADMINISTERED [None]
